FAERS Safety Report 4931609-4 (Version None)
Quarter: 2006Q1

REPORT INFORMATION
  Report Type: 
  Country: None (occurrence: None)
  Receive Date: 20060106
  Receipt Date: 20051030
  Transmission Date: 20060701
  Serious: No
  Sender: FDA-Public Use
  Company Number: 200512386BWH

PATIENT
  Age: 47 Year
  Sex: Male

DRUGS (1)
  1. LEVITRA [Suspect]
     Dosage: 10 - 20 MG, ONCE, ORAL
     Route: 048

REACTIONS (3)
  - BACK PAIN [None]
  - ERECTILE DYSFUNCTION [None]
  - FLUSHING [None]
